FAERS Safety Report 5630969-9 (Version None)
Quarter: 2008Q1

REPORT INFORMATION
  Report Type: 
  Country: None (occurrence: None)
  Receive Date: 20080219
  Receipt Date: 20080207
  Transmission Date: 20080703
  Serious: Yes (Hospitalization, Other)
  Sender: FDA-Public Use
  Company Number: US-ELI_LILLY_AND_COMPANY-US200706002922

PATIENT
  Sex: Female

DRUGS (4)
  1. FORTEO [Suspect]
     Dates: start: 20070301, end: 20070601
  2. FORTEO [Suspect]
  3. FORTEO [Suspect]
  4. FORTEO [Suspect]
     Dosage: UNKNOWN

REACTIONS (2)
  - FALL [None]
  - HIP FRACTURE [None]
